APPROVED DRUG PRODUCT: TEMAZEPAM
Active Ingredient: TEMAZEPAM
Strength: 30MG
Dosage Form/Route: CAPSULE;ORAL
Application: A071175 | Product #001
Applicant: SUN PHARMACEUTICAL INDUSTRIES INC
Approved: Jul 10, 1986 | RLD: No | RS: No | Type: DISCN